FAERS Safety Report 7208477-3 (Version None)
Quarter: 2010Q4

REPORT INFORMATION
  Report Type: 
  Country: None (occurrence: None)
  Receive Date: 20101222
  Receipt Date: 20101208
  Transmission Date: 20110411
  Serious: Yes (Other)
  Sender: FDA-Public Use
  Company Number: 009826

PATIENT
  Sex: Female
  Weight: 76.6579 kg

DRUGS (5)
  1. LACOSAMIDE [Suspect]
     Indication: EPILEPSY
     Dosage: (250 MKG BID ORAL) (100 MG BID) (150 MG, 100MG/ 50 MG)
     Route: 048
     Dates: start: 20081216
  2. LACOSAMIDE [Suspect]
     Indication: PARTIAL SEIZURES
     Dosage: (250 MKG BID ORAL) (100 MG BID) (150 MG, 100MG/ 50 MG)
     Route: 048
     Dates: start: 20081216
  3. KEPPRA [Suspect]
     Indication: EPILEPSY
     Dosage: (1500 MG QD, MORNING ORAL) (3750 MG, 1500 MG QAM AND 2250 MG QPM ORAL)
     Route: 048
     Dates: start: 20091007
  4. KEPPRA [Suspect]
     Indication: EPILEPSY
     Dosage: (1500 MG QD, MORNING ORAL) (3750 MG, 1500 MG QAM AND 2250 MG QPM ORAL)
     Route: 048
     Dates: start: 20091031
  5. ALEVE [Concomitant]

REACTIONS (1)
  - PREGNANCY ON CONTRACEPTIVE [None]
